FAERS Safety Report 14841245 (Version 1)
Quarter: 2018Q2

REPORT INFORMATION
  Report Type: Spontaneous
  Country: US (occurrence: US)
  Receive Date: 20180418
  Receipt Date: 20180418
  Transmission Date: 20180711
  Serious: Yes (Other)
  Sender: FDA-Public Use
  Company Number: None

PATIENT
  Age: 25 Year
  Sex: Male

DRUGS (1)
  1. HUMIRA [Suspect]
     Active Substance: ADALIMUMAB
     Indication: CROHN^S DISEASE
     Route: 058
     Dates: start: 20140306

REACTIONS (5)
  - Crohn^s disease [None]
  - Malaise [None]
  - Influenza [None]
  - Eating disorder [None]
  - Mobility decreased [None]

NARRATIVE: CASE EVENT DATE: 20180411
